FAERS Safety Report 10552062 (Version 1)
Quarter: 2014Q4

REPORT INFORMATION
  Report Type: Spontaneous
  Country: US (occurrence: None)
  Receive Date: 20141023
  Receipt Date: 20141023
  Transmission Date: 20150529
  Serious: No
  Sender: FDA-Public Use
  Company Number: AP356-01036-SPO-US

PATIENT
  Age: 70 Year
  Sex: Female
  Weight: 104 kg

DRUGS (6)
  1. METFORMIN [Concomitant]
     Active Substance: METFORMIN HYDROCHLORIDE
  2. SYNTHROID ( LEVOTHYROXINE SODIUM) [Concomitant]
  3. BELVIQ [Suspect]
     Active Substance: LORCASERIN HYDROCHLORIDE
     Indication: WEIGHT DECREASED
     Dosage: 20 MG , 2 IN 1 D, ORAL
     Route: 048
     Dates: start: 201406, end: 2014
  4. PRAVACHOL ( PRAVASTATIN SODIUM) [Concomitant]
  5. NEURONTIN ( GABAPENTIN) [Concomitant]
  6. BENICAR ( OLMESARTAN MEDOXOMIL) [Concomitant]

REACTIONS (3)
  - Drug ineffective [None]
  - Paraesthesia [None]
  - Headache [None]

NARRATIVE: CASE EVENT DATE: 20140630
